FAERS Safety Report 11136111 (Version 1)
Quarter: 2015Q2

REPORT INFORMATION
  Report Type: Spontaneous
  Country: CH (occurrence: CH)
  Receive Date: 20150526
  Receipt Date: 20150526
  Transmission Date: 20150821
  Serious: Yes (Hospitalization, Other)
  Sender: FDA-Public Use
  Company Number: CH-ELI_LILLY_AND_COMPANY-CH201505006781

PATIENT
  Age: 49 Year
  Sex: Male
  Weight: 58 kg

DRUGS (12)
  1. SALASOPYRINE [Concomitant]
     Dosage: 0.5G 2-0-2
     Dates: start: 201405, end: 201502
  2. MERONEM [Concomitant]
     Active Substance: MEROPENEM
     Dosage: UNK
     Dates: start: 20150210, end: 20150211
  3. ERYTHROCIN                         /00020901/ [Concomitant]
     Dosage: 250 MG 2XTGL
     Route: 042
     Dates: start: 20150227, end: 20150228
  4. METOJECT [Concomitant]
     Active Substance: METHOTREXATE SODIUM
     Dosage: 25 MG 1X/WOCHE
     Dates: start: 2004, end: 201502
  5. ZYPREXA [Suspect]
     Active Substance: OLANZAPINE
     Indication: PRODUCT USED FOR UNKNOWN INDICATION
     Dosage: 15 MG, QD
     Route: 048
     Dates: end: 20150209
  6. PIPERACILLIN/TAZOBACTAM SANDOZ [Suspect]
     Active Substance: PIPERACILLIN SODIUM\TAZOBACTAM SODIUM
     Indication: BILIARY TRACT INFECTION
     Dosage: 4.5 G, EVERY 8 HRS
     Route: 042
     Dates: start: 20150123, end: 20150308
  7. PASPERTIN                          /00041902/ [Concomitant]
     Active Substance: METOCLOPRAMIDE HYDROCHLORIDE
     Dosage: 10 MG -0-10 MG
     Dates: end: 20150308
  8. ACIDUM FOLICUM [Concomitant]
     Active Substance: FOLIC ACID
     Dosage: 5 MG T?GLICH
     Dates: end: 20150306
  9. VENLAFAXIN PFIZER [Concomitant]
     Dosage: 75 MG PRO TAG
     Dates: start: 20150228, end: 20150306
  10. CEFEPIME [Concomitant]
     Active Substance: CEFEPIME\CEFEPIME HYDROCHLORIDE
     Dosage: UNK
     Dates: start: 20150315, end: 20150317
  11. ZOVIRAX [Concomitant]
     Active Substance: ACYCLOVIR
     Dosage: UNK
     Dates: start: 20150209, end: 20150211
  12. NEXIUM [Concomitant]
     Active Substance: ESOMEPRAZOLE MAGNESIUM
     Dosage: 40 MG T?GLICH
     Dates: start: 201502, end: 20150308

REACTIONS (11)
  - Hypovolaemic shock [Recovered/Resolved]
  - Renal failure [Unknown]
  - Toxicity to various agents [Recovered/Resolved]
  - Eosinophilia [Recovered/Resolved]
  - Rhabdomyolysis [Recovered/Resolved]
  - Rash maculo-papular [Recovered/Resolved]
  - Pyrexia [Recovered/Resolved]
  - Blood alkaline phosphatase increased [Unknown]
  - Injury [Recovered/Resolved]
  - Drug reaction with eosinophilia and systemic symptoms [Recovered/Resolved]
  - Gamma-glutamyltransferase increased [Unknown]

NARRATIVE: CASE EVENT DATE: 20150206
